FAERS Safety Report 12294204 (Version 3)
Quarter: 2016Q2

REPORT INFORMATION
  Report Type: Spontaneous
  Country: IT (occurrence: IT)
  Receive Date: 20160422
  Receipt Date: 20160607
  Transmission Date: 20160815
  Serious: Yes (Death)
  Sender: FDA-Public Use
  Company Number: IT-TEVA-653508ACC

PATIENT
  Age: 53 Year
  Sex: Male
  Weight: 65 kg

DRUGS (3)
  1. HARVONI [Suspect]
     Active Substance: LEDIPASVIR\SOFOSBUVIR
     Indication: HEPATIC CIRRHOSIS
     Dosage: DAILY
     Route: 048
     Dates: start: 20160310, end: 20160409
  2. RIBAVIRINA TEVA PHARMA BV - 200 MG COMPRESSA RIVESTITA CON FILM [Suspect]
     Active Substance: RIBAVIRIN
     Indication: HEPATIC CIRRHOSIS
     Dates: start: 20160310, end: 20160409
  3. TRIUMEQ [Suspect]
     Active Substance: ABACAVIR SULFATE\DOLUTEGRAVIR SODIUM\LAMIVUDINE
     Indication: ACQUIRED IMMUNODEFICIENCY SYNDROME
     Dosage: DAILY
     Route: 048
     Dates: start: 20151204, end: 20160409

REACTIONS (2)
  - Hypovolaemic shock [Fatal]
  - Haematemesis [Fatal]

NARRATIVE: CASE EVENT DATE: 20160409
